FAERS Safety Report 10225164 (Version 2)
Quarter: 2014Q2

REPORT INFORMATION
  Report Type: Spontaneous
  Country: US (occurrence: US)
  Receive Date: 20140609
  Receipt Date: 20140609
  Transmission Date: 20141212
  Serious: No
  Sender: FDA-Public Use
  Company Number: US-FRI-1000067406

PATIENT
  Age: 48 Year
  Sex: Female
  Weight: 67.1 kg

DRUGS (13)
  1. VIIBRYD [Suspect]
     Indication: DEPRESSION
     Dosage: 10 MG
     Route: 048
     Dates: start: 20140510, end: 20140518
  2. VIIBRYD [Suspect]
     Dosage: 20 MG
     Route: 048
     Dates: start: 20140519
  3. OSPHENA [Suspect]
     Indication: VULVOVAGINAL DRYNESS
     Dosage: 60 MG
     Route: 048
     Dates: start: 20140509, end: 20140519
  4. OSPHENA [Suspect]
     Indication: ENDOMETRIOSIS
  5. CITALOPRAM [Concomitant]
     Dosage: 10 MG
     Dates: start: 201401, end: 20140518
  6. REMERON [Concomitant]
     Indication: DECREASED APPETITE
     Dosage: DAILY
     Dates: start: 2004
  7. CRANBERRY [Concomitant]
     Dates: start: 2014
  8. CALCIUM + VIT D [Concomitant]
     Dates: start: 2014
  9. BIOTIN [Concomitant]
     Dates: start: 2014
  10. VITAMINS NOS [Concomitant]
     Dates: start: 2014
  11. FISH OIL [Concomitant]
     Dates: start: 2014
  12. GINGER ROOT [Concomitant]
     Dates: start: 2014
  13. MELATONIN [Concomitant]
     Dates: start: 2014

REACTIONS (3)
  - Aphasia [Recovered/Resolved]
  - Insomnia [Unknown]
  - Vision blurred [Recovered/Resolved]
